FAERS Safety Report 14729029 (Version 1)
Quarter: 2018Q2

REPORT INFORMATION
  Report Type: Report from Study
  Country: US (occurrence: US)
  Receive Date: 20180406
  Receipt Date: 20180406
  Transmission Date: 20180711
  Serious: Yes (Hospitalization)
  Sender: FDA-Public Use
  Company Number: US-GILEAD-2017-0293714

PATIENT
  Age: 39 Year
  Sex: Female
  Weight: 95.7 kg

DRUGS (23)
  1. PRILOSEC [Concomitant]
     Active Substance: OMEPRAZOLE MAGNESIUM
  2. WELLBUTRIN [Concomitant]
     Active Substance: BUPROPION HYDROCHLORIDE
  3. EPOPROSTENOL. [Concomitant]
     Active Substance: EPOPROSTENOL
  4. DILAUDID [Concomitant]
     Active Substance: HYDROMORPHONE HYDROCHLORIDE
  5. RESTORIL [Concomitant]
     Active Substance: TEMAZEPAM
  6. AMBRISENTAN [Suspect]
     Active Substance: AMBRISENTAN
     Indication: PULMONARY HYPERTENSION
     Dosage: 10 MG, QD
     Route: 048
     Dates: start: 20140626
  7. ZOFRAN [Concomitant]
     Active Substance: ONDANSETRON HYDROCHLORIDE
  8. DEMADEX [Concomitant]
     Active Substance: TORSEMIDE
  9. FLONASE                            /00908302/ [Concomitant]
     Active Substance: MOMETASONE FUROATE
  10. LASIX [Concomitant]
     Active Substance: FUROSEMIDE
  11. OXYGEN. [Concomitant]
     Active Substance: OXYGEN
  12. ALDACTONE [Concomitant]
     Active Substance: SPIRONOLACTONE
  13. XANAX [Concomitant]
     Active Substance: ALPRAZOLAM
  14. PERCOCET                           /00446701/ [Concomitant]
     Active Substance: ACETAMINOPHEN\OXYCODONE HYDROCHLORIDE\OXYCODONE TEREPHTHALATE
  15. KLOR-CON [Concomitant]
     Active Substance: POTASSIUM CHLORIDE
  16. VIIBRYD [Concomitant]
     Active Substance: VILAZODONE HYDROCHLORIDE
  17. REGLAN [Concomitant]
     Active Substance: METOCLOPRAMIDE HYDROCHLORIDE
  18. ZANTAC [Concomitant]
     Active Substance: RANITIDINE HYDROCHLORIDE
  19. EFFEXOR [Concomitant]
     Active Substance: VENLAFAXINE HYDROCHLORIDE
  20. ZITHROMAX [Concomitant]
     Active Substance: AZITHROMYCIN DIHYDRATE
  21. ZAROXOLYN [Concomitant]
     Active Substance: METOLAZONE
  22. ADCIRCA [Suspect]
     Active Substance: TADALAFIL
     Indication: PRODUCT USED FOR UNKNOWN INDICATION
     Dosage: 20 MG, BID
     Route: 065
  23. K-DUR [Concomitant]
     Active Substance: POTASSIUM CHLORIDE

REACTIONS (5)
  - Dyspnoea exertional [Recovered/Resolved]
  - Respiration abnormal [Recovered/Resolved]
  - Catheter placement [Unknown]
  - Catheter site haemorrhage [Recovering/Resolving]
  - Device leakage [Recovering/Resolving]

NARRATIVE: CASE EVENT DATE: 20170928
